FAERS Safety Report 8504204-8 (Version None)
Quarter: 2012Q3

REPORT INFORMATION
  Report Type: 
  Country: None (occurrence: None)
  Receive Date: 20120711
  Receipt Date: 20120703
  Transmission Date: 20120928
  Serious: Yes (Hospitalization)
  Sender: FDA-Public Use
  Company Number: DE-VERTEX PHARMACEUTICALS INC.-000000000000000382

PATIENT
  Sex: Female

DRUGS (10)
  1. PANTOPRAZOLE [Concomitant]
     Dosage: DOSAGE FORM: UNSPECIFIED
     Route: 048
  2. LEVEMIR [Concomitant]
     Dosage: DOSAGE FORM: INJECTION
     Route: 065
  3. INCIVO (TELAPREVIR) [Suspect]
     Indication: HEPATITIS C
     Dosage: DOSAGE FORM: TABLET
     Route: 048
     Dates: start: 20120128, end: 20120206
  4. PROPRANOLOL [Concomitant]
     Dosage: DOSAGE FORM: UNSPECIFIED
     Route: 048
  5. SITAGLIPTIN PHOSPHATE [Concomitant]
     Route: 048
  6. ATARAX [Concomitant]
     Route: 065
  7. DIPYRONE TAB [Concomitant]
     Dosage: DOSAGE FORM: UNSPECIFIED
     Route: 048
  8. SPIRONOLACTONE [Concomitant]
     Dosage: DOSAGE FORM: UNSPECIFIED
     Route: 065
  9. PEGASYS [Concomitant]
     Indication: HEPATITIS C
     Dosage: DOSAGE FORM: INJECTION
     Route: 058
     Dates: start: 20120128, end: 20120206
  10. COPEGUS [Concomitant]
     Indication: HEPATITIS C
     Dosage: DOSAGE FORM: FILM COATED TABLET
     Route: 048
     Dates: start: 20120128, end: 20120206

REACTIONS (1)
  - ANXIETY [None]
